FAERS Safety Report 25181023 (Version 2)
Quarter: 2025Q2

REPORT INFORMATION
  Report Type: Report from Study
  Country: US (occurrence: US)
  Receive Date: 20250410
  Receipt Date: 20250429
  Transmission Date: 20250717
  Serious: Yes (Hospitalization, Other)
  Sender: ABBVIE
  Company Number: US-ABBVIE-6210992

PATIENT
  Age: 78 Year
  Sex: Male
  Weight: 77 kg

DRUGS (2)
  1. RINVOQ [Suspect]
     Active Substance: UPADACITINIB
     Indication: Colitis ulcerative
     Dosage: FORM STRENGTH: 30 MG
     Route: 048
     Dates: start: 20240607
  2. VITAMINS [Concomitant]
     Active Substance: VITAMINS
     Indication: Product used for unknown indication

REACTIONS (10)
  - Malignant melanoma [Recovered/Resolved]
  - Fall [Recovered/Resolved]
  - Pyrexia [Recovered/Resolved]
  - Dehydration [Recovered/Resolved]
  - Cellulitis [Recovered/Resolved]
  - Thrombosis [Recovering/Resolving]
  - Asthenia [Recovering/Resolving]
  - Mobility decreased [Recovering/Resolving]
  - Inguinal hernia [Not Recovered/Not Resolved]
  - Scar [Recovering/Resolving]

NARRATIVE: CASE EVENT DATE: 20240601
